FAERS Safety Report 7012830-0 (Version None)
Quarter: 2010Q3

REPORT INFORMATION
  Report Type: 
  Country: None (occurrence: None)
  Receive Date: 20100924
  Receipt Date: 20100913
  Transmission Date: 20110219
  Serious: Yes (Hospitalization)
  Sender: FDA-Public Use
  Company Number: B0675474A

PATIENT
  Sex: Female

DRUGS (10)
  1. ELONTRIL [Suspect]
     Indication: PRODUCT USED FOR UNKNOWN INDICATION
     Dosage: 150MG PER DAY
     Route: 048
     Dates: start: 20100401, end: 20100527
  2. SINEMET [Suspect]
     Indication: PRODUCT USED FOR UNKNOWN INDICATION
     Dosage: 1.5TAB FOUR TIMES PER DAY
     Route: 048
     Dates: start: 20050101
  3. CLEXANE [Concomitant]
     Dosage: 80MG PER DAY
     Route: 058
     Dates: start: 20100505
  4. SINTROM [Concomitant]
     Route: 048
     Dates: start: 20100505
  5. MIRAPEX [Concomitant]
     Route: 048
     Dates: start: 20030124
  6. ASPIRIN [Concomitant]
     Dosage: 300MG PER DAY
     Route: 048
     Dates: start: 20030124
  7. PANTOPRAZOLE SODIUM [Concomitant]
     Dosage: 20MG PER DAY
     Route: 048
     Dates: start: 20091226
  8. TROSPIUM CHLORIDE [Concomitant]
     Dosage: 20MG TWICE PER DAY
     Route: 048
     Dates: start: 20091226
  9. DIAZEPAM [Concomitant]
     Route: 048
  10. ANEUROL [Concomitant]
     Route: 048

REACTIONS (2)
  - DRUG INTERACTION [None]
  - DYSKINESIA [None]
